FAERS Safety Report 6510014-3 (Version None)
Quarter: 2009Q4

REPORT INFORMATION
  Report Type: 
  Country: None (occurrence: None)
  Receive Date: 20091222
  Receipt Date: 20091019
  Transmission Date: 20100525
  Serious: No
  Sender: FDA-Public Use
  Company Number: US-ABBOTT-09P-163-0603594-00

PATIENT
  Sex: Male
  Weight: 17.7 kg

DRUGS (1)
  1. CEFDINIR [Suspect]
     Indication: EAR INFECTION

REACTIONS (2)
  - HAEMOGLOBIN DECREASED [None]
  - HAEMOLYTIC ANAEMIA [None]
